FAERS Safety Report 23827246 (Version 1)
Quarter: 2024Q2

REPORT INFORMATION
  Report Type: Report from Study
  Country: US (occurrence: US)
  Receive Date: 20240507
  Receipt Date: 20240507
  Transmission Date: 20240716
  Serious: Yes (Other)
  Sender: FDA-Public Use
  Company Number: US-AMGEN-USASL2024087121

PATIENT
  Age: 62 Year
  Sex: Male

DRUGS (1)
  1. REPATHA [Suspect]
     Active Substance: EVOLOCUMAB
     Indication: Type IIa hyperlipidaemia
     Dosage: 420 MILLIGRAM/3.5ML, QMO
     Route: 065
     Dates: start: 20240429

REACTIONS (4)
  - Loss of consciousness [Recovering/Resolving]
  - Feeling abnormal [Recovering/Resolving]
  - Pallor [Recovering/Resolving]
  - Muscle rigidity [Recovering/Resolving]

NARRATIVE: CASE EVENT DATE: 20240429
